FAERS Safety Report 8259764-1 (Version None)
Quarter: 2012Q2

REPORT INFORMATION
  Report Type: 
  Country: None (occurrence: None)
  Receive Date: 20120404
  Receipt Date: 20120327
  Transmission Date: 20120825
  Serious: No
  Sender: FDA-Public Use
  Company Number: US-B.I. PHARMACEUTICALS,INC./RIDGEFIELD-2012-BP-05761BP

PATIENT
  Sex: Male

DRUGS (3)
  1. DIGOXIN [Concomitant]
     Indication: ARRHYTHMIA
     Dosage: 0.25 MG
     Route: 048
  2. PROPAFENONE HCL [Concomitant]
     Indication: ARRHYTHMIA
     Dosage: 700 MG
     Route: 048
  3. PRADAXA [Suspect]
     Indication: ATRIAL FIBRILLATION
     Dosage: 300 MG
     Route: 048
     Dates: start: 20120213, end: 20120320

REACTIONS (2)
  - PAIN [None]
  - ARTHRALGIA [None]
